APPROVED DRUG PRODUCT: AZELASTINE HYDROCHLORIDE AND FLUTICASONE PROPIONATE
Active Ingredient: AZELASTINE HYDROCHLORIDE; FLUTICASONE PROPIONATE
Strength: 0.137MG/SPRAY;0.05MG/SPRAY
Dosage Form/Route: SPRAY, METERED;NASAL
Application: A207712 | Product #001 | TE Code: AB
Applicant: APOTEX INC
Approved: Apr 28, 2017 | RLD: No | RS: Yes | Type: RX